FAERS Safety Report 24551314 (Version 1)
Quarter: 2024Q4

REPORT INFORMATION
  Report Type: Report from Study
  Country: US (occurrence: US)
  Receive Date: 20241025
  Receipt Date: 20241025
  Transmission Date: 20250114
  Serious: Yes (Other)
  Sender: ABBVIE
  Company Number: US-ABBVIE-5974414

PATIENT
  Sex: Female

DRUGS (1)
  1. HUMIRA [Suspect]
     Active Substance: ADALIMUMAB
     Indication: Psoriatic arthropathy
     Route: 058
     Dates: start: 20000316

REACTIONS (5)
  - Surgery [Unknown]
  - Disability [Unknown]
  - Bladder disorder [Unknown]
  - Shoulder arthroplasty [Unknown]
  - Unevaluable event [Unknown]
